FAERS Safety Report 8842266 (Version 1)
Quarter: 2012Q4

REPORT INFORMATION
  Report Type: Report from Study
  Country: JP (occurrence: JP)
  Receive Date: 20121016
  Receipt Date: 20121016
  Transmission Date: 20130627
  Serious: Yes (Other)
  Sender: FDA-Public Use
  Company Number: JP-VERTEX PHARMACEUTICAL INC.-2012-022756

PATIENT
  Age: 66 Year
  Sex: Male

DRUGS (8)
  1. VX-950 [Suspect]
     Indication: HEPATITIS C
     Dosage: 2250 mg, qd
     Route: 048
     Dates: start: 20120807, end: 20120813
  2. VX-950 [Suspect]
     Dosage: 1750 mg, qd
     Route: 048
     Dates: start: 20120814, end: 20120904
  3. VX-950 [Suspect]
     Dosage: 1000 mg, qd
     Dates: start: 20120905
  4. RIBAVIRIN [Suspect]
     Indication: HEPATITIS C
     Dosage: 800 mg, qd
     Route: 048
     Dates: start: 20120807, end: 20120828
  5. RIBAVIRIN [Suspect]
     Dosage: 500 mg, qd
     Route: 048
     Dates: start: 20120829, end: 20120918
  6. RIBAVIRIN [Suspect]
     Dosage: 300 mg, qd
     Route: 048
     Dates: start: 20120919
  7. PEGINTERFERON ALFA [Suspect]
     Indication: HEPATITIS C
     Dosage: 1.5 ?g/kg, UNK
     Route: 058
     Dates: start: 20120807
  8. AMLODIN [Concomitant]
     Dosage: 2.5 mg, UNK
     Route: 048

REACTIONS (1)
  - Haemoglobin decreased [Not Recovered/Not Resolved]
